FAERS Safety Report 7945181-8 (Version None)
Quarter: 2011Q4

REPORT INFORMATION
  Report Type: 
  Country: None (occurrence: None)
  Receive Date: 20111129
  Receipt Date: 20111125
  Transmission Date: 20120403
  Serious: Yes (Hospitalization)
  Sender: FDA-Public Use
  Company Number: JP-BAYER-2011-114119

PATIENT
  Age: 60 Year
  Sex: Male

DRUGS (5)
  1. PLAVIX [Concomitant]
     Route: 048
  2. LASIX [Concomitant]
     Route: 048
  3. ENALAPRIL MALEATE [Concomitant]
     Route: 048
  4. ASPIRIN [Suspect]
     Indication: MYOCARDIAL INFARCTION
     Dosage: DAILY DOSE 100 MG
     Route: 048
     Dates: start: 20111003, end: 20111110
  5. ASPIRIN [Suspect]
     Dosage: DAILY DOSE 100 MG
     Route: 048
     Dates: start: 20111116, end: 20111125

REACTIONS (1)
  - WHITE BLOOD CELL COUNT DECREASED [None]
